FAERS Safety Report 16363024 (Version 2)
Quarter: 2019Q2

REPORT INFORMATION
  Report Type: Spontaneous
  Country: GR (occurrence: GR)
  Receive Date: 20190528
  Receipt Date: 20190620
  Transmission Date: 20190711
  Serious: Yes (Other)
  Sender: FDA-Public Use
  Company Number: GR-CELGENEUS-GRC-20190300645

PATIENT
  Age: 74 Year
  Sex: Female

DRUGS (5)
  1. THALIDOMIDE CELGENE [Suspect]
     Active Substance: THALIDOMIDE
     Indication: PLASMA CELL MYELOMA
     Dosage: 100 MILLIGRAM
     Route: 048
     Dates: start: 20121115, end: 20130516
  2. MELPHALAN. [Concomitant]
     Active Substance: MELPHALAN
     Indication: PLASMA CELL MYELOMA
     Dosage: 12 MILLIGRAM
     Route: 048
     Dates: start: 20121115, end: 20130516
  3. SALOSPIR [Concomitant]
     Active Substance: ASPIRIN
     Indication: PROPHYLAXIS
     Dosage: 100 MILLIGRAM
     Route: 048
     Dates: start: 20130207, end: 20130516
  4. EPOETIN-ALPHA [Concomitant]
     Indication: ANAEMIA
     Dosage: 40000 IU (INTERNATIONAL UNIT)
     Route: 058
     Dates: start: 20130110, end: 20140327
  5. PREDNISOLONE. [Concomitant]
     Active Substance: PREDNISOLONE
     Indication: PLASMA CELL MYELOMA
     Dosage: 100 MILLIGRAM
     Route: 048
     Dates: start: 20121115, end: 20130516

REACTIONS (3)
  - Oedema [Recovered/Resolved]
  - Hypertension [Unknown]
  - Asthma [Unknown]

NARRATIVE: CASE EVENT DATE: 20130516
